FAERS Safety Report 10836047 (Version 3)
Quarter: 2015Q1

REPORT INFORMATION
  Report Type: Spontaneous
  Country: US (occurrence: US)
  Receive Date: 20150219
  Receipt Date: 20150330
  Transmission Date: 20150721
  Serious: Yes (Other)
  Sender: FDA-Public Use
  Company Number: US-JAZZ-2015-US-001177

PATIENT
  Sex: Male
  Weight: 72.1 kg

DRUGS (8)
  1. XYREM [Suspect]
     Active Substance: SODIUM OXYBATE
     Dosage: 2.5 G, BID
     Route: 048
     Dates: start: 201502
  2. FISH OIL NATURE MADE [Concomitant]
     Indication: SUPPLEMENTATION THERAPY
     Dosage: UNK
     Route: 048
  3. TURMERIC [Concomitant]
     Active Substance: TURMERIC
     Indication: SUPPLEMENTATION THERAPY
     Dosage: UNK
     Route: 048
  4. XYREM [Suspect]
     Active Substance: SODIUM OXYBATE
     Dosage: 3 G, BID
     Route: 048
     Dates: start: 201108, end: 201502
  5. XYREM [Suspect]
     Active Substance: SODIUM OXYBATE
     Indication: INSOMNIA
     Dosage: 2.25 G, BID
     Route: 048
     Dates: start: 201002, end: 201002
  6. VALPROIC ACID. [Suspect]
     Active Substance: VALPROIC ACID
     Indication: POST CONCUSSION SYNDROME
     Dosage: UNK
     Route: 048
     Dates: start: 201501, end: 201501
  7. VALIUM [Suspect]
     Active Substance: DIAZEPAM
     Indication: PRODUCT USED FOR UNKNOWN INDICATION
  8. XYREM [Suspect]
     Active Substance: SODIUM OXYBATE
     Indication: UNEVALUABLE EVENT
     Dosage: DOSE ADJUSTMENTS
     Route: 048

REACTIONS (13)
  - Large intestinal haemorrhage [Unknown]
  - Diverticulitis [Not Recovered/Not Resolved]
  - Dyspnoea [Unknown]
  - Thinking abnormal [Unknown]
  - Gastric haemorrhage [Unknown]
  - Concussion [Unknown]
  - Respiratory depression [Recovered/Resolved]
  - Anxiety [Not Recovered/Not Resolved]
  - Discomfort [Not Recovered/Not Resolved]
  - Hyperhidrosis [Not Recovered/Not Resolved]
  - Diverticulum [Not Recovered/Not Resolved]
  - Drug interaction [Not Recovered/Not Resolved]
  - Contraindicated drug administered [Unknown]
